FAERS Safety Report 9149943 (Version 3)
Quarter: 2013Q2

REPORT INFORMATION
  Report Type: Spontaneous
  Country: DK (occurrence: DK)
  Receive Date: 20130308
  Receipt Date: 20130404
  Transmission Date: 20140414
  Serious: Yes (Other)
  Sender: FDA-Public Use
  Company Number: PHHY2013DK021827

PATIENT
  Sex: Female
  Weight: 115 kg

DRUGS (4)
  1. LINDYNETTE [Suspect]
     Indication: CONTRACEPTION
     Route: 048
     Dates: start: 201302
  2. REMICADE [Interacting]
     Indication: CROHN^S DISEASE
     Dosage: 5 MG/KG, UNK
     Route: 042
     Dates: start: 20110103
  3. PANTOPRAZOLE [Concomitant]
     Dates: start: 20121211
  4. PREDNISOLON [Concomitant]
     Dates: start: 20130201, end: 20130208

REACTIONS (6)
  - Sensory disturbance [Unknown]
  - Vasculitis [Unknown]
  - Pain in extremity [Unknown]
  - Paraesthesia [Unknown]
  - Embolism [Unknown]
  - Drug interaction [Unknown]
